FAERS Safety Report 24627057 (Version 1)
Quarter: 2024Q4

REPORT INFORMATION
  Report Type: Other
  Country: TR (occurrence: TR)
  Receive Date: 20241115
  Receipt Date: 20241115
  Transmission Date: 20250114
  Serious: Yes (Hospitalization, Other)
  Sender: ANI
  Company Number: TR-ANIPHARMA-012796

PATIENT
  Age: 19 Year
  Sex: Male

DRUGS (5)
  1. METHYLPHENIDATE [Suspect]
     Active Substance: METHYLPHENIDATE
     Indication: Product used for unknown indication
     Dosage: 54 MG/DAY
  2. VALPROATE SODIUM [Concomitant]
     Active Substance: VALPROATE SODIUM
     Indication: Product used for unknown indication
     Dosage: 1000 MG/DAY
  3. LURASIDONE [Concomitant]
     Active Substance: LURASIDONE
     Indication: Product used for unknown indication
     Dosage: 40 MG/DAY
  4. CLOZAPINE [Concomitant]
     Active Substance: CLOZAPINE
     Indication: Bipolar disorder
     Dosage: 100 MG/DAY
  5. CLOZAPINE [Concomitant]
     Active Substance: CLOZAPINE
     Indication: Bipolar disorder
     Dosage: 18 TABLETS OF 100MG

REACTIONS (5)
  - Drug interaction [Unknown]
  - Drug interaction [Unknown]
  - Lumbosacral radiculoplexus neuropathy [Recovering/Resolving]
  - Muscle atrophy [Recovering/Resolving]
  - Gait disturbance [Recovering/Resolving]
